FAERS Safety Report 6077529-6 (Version None)
Quarter: 2009Q1

REPORT INFORMATION
  Report Type: 
  Country: None (occurrence: None)
  Receive Date: 20090211
  Receipt Date: 20090204
  Transmission Date: 20090719
  Serious: Yes (Hospitalization)
  Sender: FDA-Public Use
  Company Number: 6048570

PATIENT
  Age: 53 Year
  Sex: Male

DRUGS (5)
  1. BISOPROLOL FUMARATE [Suspect]
     Indication: DRUG USE FOR UNKNOWN INDICATION
     Dosage: 70 MG (70 MG, 1 IN 1 D) ORAL
     Route: 048
  2. ZOCOR [Suspect]
     Indication: DRUG USE FOR UNKNOWN INDICATION
     Dosage: 40 MG (40 MG, 1 IN 1 D) ORAL
     Route: 048
     Dates: start: 20040401
  3. PLAVIX [Concomitant]
  4. PERINDOPRIL ERBUMINE [Concomitant]
  5. OMEPRAZOLE [Concomitant]

REACTIONS (6)
  - BLOOD CREATINE PHOSPHOKINASE INCREASED [None]
  - CYTOLYTIC HEPATITIS [None]
  - OVERDOSE [None]
  - PULMONARY FIBROSIS [None]
  - SCLEROEDEMA [None]
  - WEIGHT INCREASED [None]
